FAERS Safety Report 12736662 (Version 2)
Quarter: 2016Q4

REPORT INFORMATION
  Report Type: Spontaneous
  Country: TW (occurrence: TW)
  Receive Date: 20160913
  Receipt Date: 20161027
  Transmission Date: 20170207
  Serious: Yes (Hospitalization)
  Sender: FDA-Public Use
  Company Number: PHHY2016TW124743

PATIENT
  Age: 51 Year
  Sex: Female

DRUGS (5)
  1. VALPROIC ACID. [Concomitant]
     Active Substance: VALPROIC ACID
     Dosage: 600 MG, QID
     Route: 065
     Dates: start: 20001008
  2. VALPROIC ACID. [Concomitant]
     Active Substance: VALPROIC ACID
     Dosage: 400 MG, QID
     Route: 065
     Dates: start: 20001003, end: 20001006
  3. CARBAMAZEPINE. [Suspect]
     Active Substance: CARBAMAZEPINE
     Indication: EPILEPSY
     Dosage: 200 MG, TID
     Route: 065
     Dates: start: 20001003, end: 20001008
  4. VALPROIC ACID. [Concomitant]
     Active Substance: VALPROIC ACID
     Indication: EPILEPSY
     Dosage: 600 MG, QID
     Route: 065
     Dates: start: 1990, end: 20001002
  5. VALPROIC ACID. [Concomitant]
     Active Substance: VALPROIC ACID
     Dosage: 200 MG, QID
     Route: 065
     Dates: start: 20001006, end: 20001008

REACTIONS (1)
  - Pleural effusion [Recovering/Resolving]

NARRATIVE: CASE EVENT DATE: 20001008
